FAERS Safety Report 6349201-6 (Version None)
Quarter: 2009Q3

REPORT INFORMATION
  Report Type: 
  Country: None (occurrence: None)
  Receive Date: 20090911
  Receipt Date: 20090831
  Transmission Date: 20100115
  Serious: Yes (Other)
  Sender: FDA-Public Use
  Company Number: US-JNJFOC-20090602325

PATIENT
  Sex: Male
  Weight: 76.2 kg

DRUGS (12)
  1. REMICADE [Suspect]
     Indication: PROCTITIS ULCERATIVE
     Route: 042
     Dates: start: 20081030
  2. REMICADE [Suspect]
     Indication: CROHN'S DISEASE
     Route: 042
     Dates: start: 20081030
  3. NORVASC [Concomitant]
     Indication: BLOOD PRESSURE
  4. TOPROL-XL [Concomitant]
     Indication: BLOOD PRESSURE
  5. CONCERTA [Concomitant]
     Indication: ATTENTION DEFICIT/HYPERACTIVITY DISORDER
  6. PRILOSEC [Concomitant]
  7. CRESTOR [Concomitant]
     Indication: BLOOD CHOLESTEROL INCREASED
  8. CLONAZEPAM [Concomitant]
     Indication: SLEEP APNOEA SYNDROME
  9. VITAMIN [Concomitant]
  10. CANASA [Concomitant]
  11. HYDROCHLOROTHIAZIDE [Concomitant]
     Route: 048
  12. NORVASC [Concomitant]
     Route: 048

REACTIONS (4)
  - HEADACHE [None]
  - INTERVERTEBRAL DISC PROTRUSION [None]
  - OEDEMA PERIPHERAL [None]
  - WEIGHT INCREASED [None]
